FAERS Safety Report 15551940 (Version 1)
Quarter: 2018Q4

REPORT INFORMATION
  Report Type: Spontaneous
  Country: DE (occurrence: DE)
  Receive Date: 20181025
  Receipt Date: 20181025
  Transmission Date: 20190205
  Serious: Yes (Congenital Anomaly)
  Sender: FDA-Public Use
  Company Number: DE-TEVA-2018-DE-967934

PATIENT

DRUGS (21)
  1. QUENSYL [Suspect]
     Active Substance: HYDROXYCHLOROQUINE
     Indication: SYSTEMIC LUPUS ERYTHEMATOSUS
     Dosage: 200 MILLIGRAM DAILY; DAILY DOSE: 400 MG MILLGRAM(S) EVERY DAYS
     Route: 064
     Dates: start: 20111214, end: 20120320
  2. ALBUTEROL. [Concomitant]
     Active Substance: ALBUTEROL
     Indication: ASTHMA
     Dosage: UNK, PRN
     Route: 064
  3. NOVAMINSULFON [Concomitant]
     Active Substance: METAMIZOLE
     Indication: PAIN
     Dosage: FOR 5 WEEKS
     Route: 065
  4. TOREM [Suspect]
     Active Substance: TORSEMIDE
     Indication: NEPHROTIC SYNDROME
     Dosage: 100 [MG/D ]
     Route: 064
     Dates: start: 20111214, end: 20120320
  5. RITUXIMAB. [Suspect]
     Active Substance: RITUXIMAB
     Indication: SYSTEMIC LUPUS ERYTHEMATOSUS
     Dosage: LAST TIME IN DECEMBER 2011: PRE OR PERICONCEPTIONAL
     Route: 064
     Dates: end: 201112
  6. RASILEZ [Concomitant]
     Active Substance: ALISKIREN
     Indication: HYPERTENSION
     Dosage: 300 [MG/D ]
     Route: 064
     Dates: start: 20111214, end: 20120117
  7. PREDNISOLON [Concomitant]
     Active Substance: PREDNISOLONE
     Indication: SYSTEMIC LUPUS ERYTHEMATOSUS
     Dosage: DAILY DOSE: 10 MG MILLIGRAM(S) EVERY 2 DAY
     Route: 064
     Dates: start: 20111214, end: 20120320
  8. MIFEGYNE [Concomitant]
     Active Substance: MIFEPRISTONE
     Indication: ABORTION INDUCED
     Dosage: UNK
     Route: 064
     Dates: start: 20120320, end: 20120320
  9. SALBUTAMOL [Concomitant]
     Active Substance: ALBUTEROL
     Indication: ASTHMA
     Dosage: IF REQUIRED
     Route: 064
  10. XARELTO 10 MG FILMTABLETTEN [Concomitant]
     Indication: VENA CAVA THROMBOSIS
     Dosage: NOT KNOWN, IF TREATMENT STARTED BEFORE OR AFTER MISSED ABORTION.
     Route: 064
  11. NOVAMINSULFON [Concomitant]
     Active Substance: METAMIZOLE
     Indication: PAIN
     Dosage: PROBABLY ONLY IN HOSPITAL IN WEEK 5
     Route: 064
  12. TACROLIMUS. [Suspect]
     Active Substance: TACROLIMUS
     Indication: SYSTEMIC LUPUS ERYTHEMATOSUS
     Route: 064
  13. DELIX (RAMIPRIL) [Suspect]
     Active Substance: RAMIPRIL
     Indication: NEPHROTIC SYNDROME
     Dosage: 20 [MG/D ]
     Route: 064
     Dates: start: 20111214, end: 20120320
  14. CYTOTEC [Concomitant]
     Active Substance: MISOPROSTOL
     Indication: ABORTION INDUCED
     Dosage: UNK
     Route: 064
     Dates: start: 20120320, end: 20120320
  15. CYCLOPHOSPHAMID [Concomitant]
     Active Substance: CYCLOPHOSPHAMIDE
     Indication: SYSTEMIC LUPUS ERYTHEMATOSUS
     Dosage: 3000 [MG CUMULATIVE ]/ APRIL -AUGUST 2011
     Route: 064
     Dates: start: 201104, end: 201108
  16. INEGY [Suspect]
     Active Substance: EZETIMIBE\SIMVASTATIN
     Indication: HYPERCHOLESTEROLAEMIA
     Dosage: 40 [MG/D ] / 10 [MG/D ]
     Route: 064
     Dates: start: 20111214, end: 20120320
  17. CLEXANE [Concomitant]
     Active Substance: ENOXAPARIN SODIUM
     Indication: PULMONARY EMBOLISM
     Dosage: 200 [MG/D (2X100) ]
     Route: 064
     Dates: start: 20111214, end: 20120320
  18. ASPIRIN. [Concomitant]
     Active Substance: ASPIRIN
     Indication: VENA CAVA THROMBOSIS
     Dosage: 100 [MG/D ]
     Route: 064
     Dates: start: 20111214, end: 20120320
  19. ADVAGRAF [Suspect]
     Active Substance: TACROLIMUS
     Indication: SYSTEMIC LUPUS ERYTHEMATOSUS
     Dosage: 6 [MG/D ]
     Route: 064
     Dates: start: 20111214, end: 20120320
  20. PANTOZOL [Concomitant]
     Active Substance: PANTOPRAZOLE SODIUM
     Indication: GASTRITIS PROPHYLAXIS
     Dosage: 40 [MG/D ]
     Route: 064
     Dates: start: 20111214, end: 20120320
  21. ALISKIREN [Concomitant]
     Active Substance: ALISKIREN
     Indication: HYPERTENSION
     Dosage: 300 [MG/D ]
     Route: 064
     Dates: start: 20111214, end: 20120117

REACTIONS (4)
  - Congenital anomaly [None]
  - Truncus arteriosus persistent [Not Recovered/Not Resolved]
  - Maternal drugs affecting foetus [None]
  - Ventricular septal defect [Not Recovered/Not Resolved]
